FAERS Safety Report 7495661-7 (Version None)
Quarter: 2011Q2

REPORT INFORMATION
  Report Type: 
  Country: None (occurrence: None)
  Receive Date: 20110523
  Receipt Date: 20110516
  Transmission Date: 20111010
  Serious: No
  Sender: FDA-Public Use
  Company Number: US-PFIZER INC-2011087903

PATIENT
  Sex: Male

DRUGS (6)
  1. NORVASC [Concomitant]
     Dosage: 10 MG, 1X/DAY
  2. CHANTIX [Concomitant]
     Dosage: UNK
  3. SUTENT [Suspect]
     Indication: RENAL CELL CARCINOMA
     Dosage: 50 MG, DAILY FOR 4 WEEKS, EVERY 6 WEEKS
     Route: 048
     Dates: start: 20101021
  4. LIPITOR [Concomitant]
     Dosage: 20 MG, 1X/DAY
  5. OXYCONTIN [Concomitant]
     Dosage: 15 MG, 2X/DAY (EVERY 12 HR.)
  6. OXYCODONE [Concomitant]
     Dosage: 5-10 MG, EVERY 4 HRS.

REACTIONS (2)
  - NEOPLASM MALIGNANT [None]
  - DISEASE PROGRESSION [None]
